FAERS Safety Report 5179456-5 (Version None)
Quarter: 2006Q4

REPORT INFORMATION
  Report Type: 
  Country: None (occurrence: None)
  Receive Date: 20061219
  Receipt Date: 20061212
  Transmission Date: 20070319
  Serious: Yes (Hospitalization)
  Sender: FDA-Public Use
  Company Number: CZ-BRISTOL-MYERS SQUIBB COMPANY-13610548

PATIENT
  Age: 64 Year
  Sex: Female
  Weight: 108 kg

DRUGS (3)
  1. IRBESARTAN [Suspect]
     Indication: HYPERTENSION
     Dates: start: 20040810
  2. PLACEBO [Suspect]
     Indication: HYPERTENSION
     Dates: start: 20040810
  3. WARFARIN SODIUM [Suspect]
     Indication: PROPHYLAXIS
     Dates: start: 20040810

REACTIONS (1)
  - ASTHMA [None]
